FAERS Safety Report 25852286 (Version 1)
Quarter: 2025Q3

REPORT INFORMATION
  Report Type: Spontaneous
  Country: US (occurrence: US)
  Receive Date: 20250926
  Receipt Date: 20250926
  Transmission Date: 20251021
  Serious: Yes (Hospitalization)
  Sender: MYLAN
  Company Number: US-MYLANLABS-2025M1072220

PATIENT
  Age: 58 Year
  Sex: Female

DRUGS (28)
  1. PACLITAXEL [Suspect]
     Active Substance: PACLITAXEL
     Indication: Endometrial cancer stage III
  2. PACLITAXEL [Suspect]
     Active Substance: PACLITAXEL
  3. PACLITAXEL [Suspect]
     Active Substance: PACLITAXEL
     Route: 042
  4. PACLITAXEL [Suspect]
     Active Substance: PACLITAXEL
     Route: 042
  5. PACLITAXEL [Suspect]
     Active Substance: PACLITAXEL
  6. PACLITAXEL [Suspect]
     Active Substance: PACLITAXEL
  7. PACLITAXEL [Suspect]
     Active Substance: PACLITAXEL
     Route: 042
  8. PACLITAXEL [Suspect]
     Active Substance: PACLITAXEL
     Route: 042
  9. IBUPROFEN [Suspect]
     Active Substance: IBUPROFEN
     Indication: Abdominal pain lower
  10. IBUPROFEN [Suspect]
     Active Substance: IBUPROFEN
     Route: 065
  11. IBUPROFEN [Suspect]
     Active Substance: IBUPROFEN
     Route: 065
  12. IBUPROFEN [Suspect]
     Active Substance: IBUPROFEN
  13. CISPLATIN [Suspect]
     Active Substance: CISPLATIN
     Indication: Endometrial cancer stage III
  14. CISPLATIN [Suspect]
     Active Substance: CISPLATIN
     Route: 042
  15. CISPLATIN [Suspect]
     Active Substance: CISPLATIN
     Route: 042
  16. CISPLATIN [Suspect]
     Active Substance: CISPLATIN
  17. CARBOPLATIN [Suspect]
     Active Substance: CARBOPLATIN
     Indication: Endometrial cancer stage III
  18. CARBOPLATIN [Suspect]
     Active Substance: CARBOPLATIN
     Route: 042
  19. CARBOPLATIN [Suspect]
     Active Substance: CARBOPLATIN
     Route: 042
  20. CARBOPLATIN [Suspect]
     Active Substance: CARBOPLATIN
  21. LEVOTHYROXINE [Concomitant]
     Active Substance: LEVOTHYROXINE
     Indication: Hypothyroidism
  22. LEVOTHYROXINE [Concomitant]
     Active Substance: LEVOTHYROXINE
     Route: 065
  23. LEVOTHYROXINE [Concomitant]
     Active Substance: LEVOTHYROXINE
     Route: 065
  24. LEVOTHYROXINE [Concomitant]
     Active Substance: LEVOTHYROXINE
  25. PANTOPRAZOLE [Concomitant]
     Active Substance: PANTOPRAZOLE
     Indication: Helicobacter infection
     Dosage: 40 MILLIGRAM, BID
  26. PANTOPRAZOLE [Concomitant]
     Active Substance: PANTOPRAZOLE
     Dosage: 40 MILLIGRAM, BID
     Route: 065
  27. PANTOPRAZOLE [Concomitant]
     Active Substance: PANTOPRAZOLE
     Dosage: 40 MILLIGRAM, BID
     Route: 065
  28. PANTOPRAZOLE [Concomitant]
     Active Substance: PANTOPRAZOLE
     Dosage: 40 MILLIGRAM, BID

REACTIONS (4)
  - Gastritis haemorrhagic [Recovered/Resolved]
  - Duodenal ulcer [Unknown]
  - Anaemia [Recovering/Resolving]
  - Febrile neutropenia [Recovering/Resolving]
